FAERS Safety Report 9311262 (Version 3)
Quarter: 2013Q4

REPORT INFORMATION
  Report Type: Spontaneous
  Country: SE (occurrence: SE)
  Receive Date: 20130528
  Receipt Date: 20131008
  Transmission Date: 20140711
  Serious: Yes (Other)
  Sender: FDA-Public Use
  Company Number: SE-PFIZER INC-2013160188

PATIENT
  Age: 78 Year
  Sex: Male

DRUGS (12)
  1. SPIRONOLAKTON PFIZER [Suspect]
     Indication: HYPERTENSION
     Dosage: 50 MG, 1X/DAY
     Dates: start: 20120816, end: 20130221
  2. SPIRONOLAKTON PFIZER [Suspect]
     Dosage: 25 MG, 1X/DAY
     Dates: start: 20130222, end: 20130827
  3. LASIX RETARD [Concomitant]
     Dosage: 30 MG, UNK
     Dates: end: 20130515
  4. SELOKEN ZOC [Concomitant]
     Dosage: 100 MG, UNK
  5. AMLODIPINE SANDOZ [Concomitant]
     Dosage: 10 MG, UNK
  6. AMIAS [Concomitant]
     Dosage: 8 MG, UNK
  7. SIMVASTATIN [Concomitant]
     Dosage: 20 MG, UNK
  8. TIMOSAN [Concomitant]
  9. NASONEX [Concomitant]
  10. ATACAND [Concomitant]
     Dosage: 16 MG, UNK
  11. ATACAND [Concomitant]
     Dosage: 32 MG, UNK
  12. SELOKEN [Concomitant]
     Dosage: 100 MG, UNK

REACTIONS (5)
  - Mastitis [Recovering/Resolving]
  - Gynaecomastia [Unknown]
  - Toothache [Recovering/Resolving]
  - Eczema [Not Recovered/Not Resolved]
  - Skin ulcer [Unknown]
